FAERS Safety Report 21436730 (Version 3)
Quarter: 2022Q4

REPORT INFORMATION
  Report Type: Spontaneous
  Country: US (occurrence: US)
  Receive Date: 20221010
  Receipt Date: 20221107
  Transmission Date: 20230113
  Serious: Yes (Death, Hospitalization, Other)
  Sender: FDA-Public Use
  Company Number: US-EPIZYME, INC-2022USEPIZYME0723

PATIENT

DRUGS (6)
  1. TAZVERIK [Suspect]
     Active Substance: TAZEMETOSTAT HYDROBROMIDE
     Indication: Follicular lymphoma
     Dosage: 800 MG, BID
     Route: 048
     Dates: start: 20200812, end: 20221007
  2. TAZVERIK [Suspect]
     Active Substance: TAZEMETOSTAT HYDROBROMIDE
     Dosage: 800 MG, BID
     Route: 048
     Dates: start: 20200812, end: 20221007
  3. ONDANSETRON [Concomitant]
     Active Substance: ONDANSETRON
     Indication: Product used for unknown indication
  4. HYDROCORTISONE [Concomitant]
     Active Substance: HYDROCORTISONE
     Indication: Product used for unknown indication
     Route: 061
  5. FOLIC ACID [Concomitant]
     Active Substance: FOLIC ACID
     Indication: Product used for unknown indication
  6. BENADRYL [Concomitant]
     Active Substance: DIPHENHYDRAMINE HYDROCHLORIDE
     Indication: Product used for unknown indication
     Route: 061

REACTIONS (10)
  - Death [Fatal]
  - Ascites [Unknown]
  - Fluid retention [Not Recovered/Not Resolved]
  - Anuria [Not Recovered/Not Resolved]
  - Decreased appetite [Not Recovered/Not Resolved]
  - Ureteric obstruction [Not Recovered/Not Resolved]
  - Thrombosis [Not Recovered/Not Resolved]
  - Chest pain [Not Recovered/Not Resolved]
  - Pleural effusion [Unknown]
  - Disease progression [Unknown]

NARRATIVE: CASE EVENT DATE: 20221020
